FAERS Safety Report 20723383 (Version 1)
Quarter: 2022Q2

REPORT INFORMATION
  Report Type: Spontaneous
  Country: JP (occurrence: JP)
  Receive Date: 20220419
  Receipt Date: 20220419
  Transmission Date: 20220721
  Serious: Yes (Life-Threatening, Other)
  Sender: FDA-Public Use
  Company Number: JP-RECORDATI-2022001462

PATIENT

DRUGS (6)
  1. DACTINOMYCIN [Suspect]
     Active Substance: DACTINOMYCIN
     Indication: Bone sarcoma
     Dosage: 0.045 MG/KG, 3.5 CYCLES
  2. VINCRISTINE [Suspect]
     Active Substance: VINCRISTINE
     Indication: Bone sarcoma
     Dosage: 1.5 MG/M2, 3.5 CYCLES
  3. DOXORUBICIN [Suspect]
     Active Substance: DOXORUBICIN
     Indication: Bone sarcoma
     Dosage: 75 MG/M2, 3.5 CYCLES
  4. CYCLOPHOSPHAMIDE [Suspect]
     Active Substance: CYCLOPHOSPHAMIDE
     Indication: Bone sarcoma
     Dosage: 1,200 MG/M2, 3.5 CYCLES
  5. IFOSFAMIDE [Suspect]
     Active Substance: IFOSFAMIDE
     Indication: Bone sarcoma
     Dosage: 1,800 MG/M2, 3.5 CYCLES
  6. ETOPOSIDE [Suspect]
     Active Substance: ETOPOSIDE
     Indication: Bone sarcoma
     Dosage: 100 MG/M2, 3.5 CYCLES

REACTIONS (4)
  - White blood cell count decreased [Unknown]
  - Neutropenia [Unknown]
  - Anaemia [Unknown]
  - Off label use [Recovered/Resolved]
